FAERS Safety Report 12203948 (Version 1)
Quarter: 2016Q1

REPORT INFORMATION
  Report Type: Spontaneous
  Country: US (occurrence: US)
  Receive Date: 20160323
  Receipt Date: 20160323
  Transmission Date: 20160526
  Serious: Yes (Disabling)
  Sender: FDA-Public Use
  Company Number: GXBR2012US001265

PATIENT
  Sex: Female

DRUGS (2)
  1. METOCLOPRAMIDE TABLETS USP [Suspect]
     Active Substance: METOCLOPRAMIDE
     Indication: ABDOMINAL DISTENSION
     Dosage: UNK MG, UNK
     Route: 065
     Dates: start: 1997, end: 200906
  2. METOCLOPRAMIDE TABLETS USP [Suspect]
     Active Substance: METOCLOPRAMIDE
     Indication: DYSPEPSIA

REACTIONS (1)
  - Tardive dyskinesia [Unknown]
